FAERS Safety Report 10578505 (Version 1)
Quarter: 2014Q4

REPORT INFORMATION
  Report Type: Spontaneous
  Country: US (occurrence: None)
  Receive Date: 20141106
  Receipt Date: 20141106
  Transmission Date: 20150529
  Serious: Yes (Other)
  Sender: FDA-Public Use
  Company Number: ALL1-2014-00328

PATIENT
  Age: 8 Year
  Sex: Male
  Weight: 45.4 kg

DRUGS (4)
  1. OTHER THERAPEUTIC PRODUCTS TABLET [Concomitant]
  2. ADDERALL XR [Suspect]
     Active Substance: AMPHETAMINE ASPARTATE\AMPHETAMINE SULFATE\DEXTROAMPHETAMINE SACCHARATE\DEXTROAMPHETAMINE SULFATE
     Indication: ATTENTION DEFICIT/HYPERACTIVITY DISORDER
     Dosage: 2 DF (2 CAPSULES), 1X/DAY:QD, ORAL
     Route: 048
  3. INTUNIV [Suspect]
     Active Substance: GUANFACINE HYDROCHLORIDE
     Indication: ATTENTION DEFICIT/HYPERACTIVITY DISORDER
     Route: 048
     Dates: start: 2013
  4. ALBUTEROL (SALBUTAMOL) [Concomitant]
     Active Substance: ALBUTEROL

REACTIONS (12)
  - Weight increased [None]
  - Dysphemia [None]
  - Increased appetite [None]
  - Disturbance in social behaviour [None]
  - Decreased appetite [None]
  - Appetite disorder [None]
  - Blood cholesterol increased [None]
  - Psychomotor hyperactivity [None]
  - Salt craving [None]
  - Logorrhoea [None]
  - Gynaecomastia [None]
  - Drug dose omission [None]

NARRATIVE: CASE EVENT DATE: 2013
